FAERS Safety Report 8617828-4 (Version None)
Quarter: 2012Q3

REPORT INFORMATION
  Report Type: 
  Country: None (occurrence: None)
  Receive Date: 20120824
  Receipt Date: 20120222
  Transmission Date: 20120928
  Serious: No
  Sender: FDA-Public Use
  Company Number: US-ASTRAZENECA-2012SE12262

PATIENT
  Sex: Male

DRUGS (2)
  1. ACYCLOVIR [Interacting]
     Indication: HERPES ZOSTER
     Route: 065
  2. SYMBICORT [Suspect]
     Indication: CHRONIC OBSTRUCTIVE PULMONARY DISEASE
     Route: 055
     Dates: start: 20110101

REACTIONS (2)
  - HERPES ZOSTER [None]
  - DRUG INTERACTION [None]
